FAERS Safety Report 9512288 (Version 1)
Quarter: 2013Q3

REPORT INFORMATION
  Report Type: Spontaneous
  Country: US (occurrence: US)
  Receive Date: 20130910
  Receipt Date: 20130910
  Transmission Date: 20140515
  Serious: No
  Sender: FDA-Public Use
  Company Number: -SAAVPROD-BMS15588817

PATIENT
  Age: 67 Year
  Sex: Male

DRUGS (2)
  1. AVAPRO [Suspect]
     Route: 048
  2. AVALIDE [Suspect]
     Dosage: 1 DF: 300/12.5 MG

REACTIONS (6)
  - Heart rate irregular [Unknown]
  - Chest pain [Unknown]
  - Palpitations [Unknown]
  - Dyspnoea [Unknown]
  - Abdominal distension [Unknown]
  - Constipation [Unknown]
